FAERS Safety Report 7632778-8 (Version None)
Quarter: 2011Q3

REPORT INFORMATION
  Report Type: 
  Country: None (occurrence: None)
  Receive Date: 20110725
  Receipt Date: 20110110
  Transmission Date: 20111222
  Serious: No
  Sender: FDA-Public Use
  Company Number: US-BRISTOL-MYERS SQUIBB COMPANY-15478951

PATIENT
  Age: 77 Year
  Sex: Male
  Weight: 86 kg

DRUGS (1)
  1. COUMADIN [Suspect]
     Indication: ATRIAL FIBRILLATION
     Dosage: PATIENT OFF COUMADIN ON 16DEC2010 AND RESTARTED AFTER PATIENT EXPERIENCE ATRIAL FIBRILLATION

REACTIONS (1)
  - INTERNATIONAL NORMALISED RATIO FLUCTUATION [None]
